FAERS Safety Report 6113651-3 (Version None)
Quarter: 2009Q1

REPORT INFORMATION
  Report Type: 
  Country: None (occurrence: None)
  Receive Date: 20090312
  Receipt Date: 20090302
  Transmission Date: 20090719
  Serious: Yes (Other)
  Sender: FDA-Public Use
  Company Number: US-BAXTER-2009BH003502

PATIENT

DRUGS (3)
  1. EPINEPHRINE [Suspect]
     Indication: DRUG USE FOR UNKNOWN INDICATION
     Route: 041
     Dates: start: 20090115
  2. LIDOCAINE [Suspect]
     Indication: DRUG USE FOR UNKNOWN INDICATION
     Route: 041
     Dates: start: 20090115
  3. INTRAVENOUS FLUID [Concomitant]
     Indication: FLUID REPLACEMENT
     Route: 041
     Dates: start: 20090115

REACTIONS (1)
  - DRUG DOSE OMISSION [None]
